FAERS Safety Report 19785132 (Version 1)
Quarter: 2021Q3

REPORT INFORMATION
  Report Type: Spontaneous
  Country: US (occurrence: US)
  Receive Date: 20210903
  Receipt Date: 20210903
  Transmission Date: 20211014
  Serious: No
  Sender: FDA-Public Use
  Company Number: None

PATIENT
  Age: 66 Year
  Sex: Male
  Weight: 80 kg

DRUGS (20)
  1. HYDROCORTISONE 10MG [Concomitant]
  2. ATOVAQUONE 750MG/5ML [Concomitant]
  3. METOPROLOL TARTRATE 25MG [Concomitant]
     Active Substance: METOPROLOL TARTRATE
  4. GEMFIBROZIL 600MG [Concomitant]
     Active Substance: GEMFIBROZIL
  5. SENOKOT S 8.6?50MG [Concomitant]
  6. KEPPRA [Concomitant]
     Active Substance: LEVETIRACETAM
  7. ONDANSETRON 4MG [Concomitant]
     Active Substance: ONDANSETRON
  8. TOLTERODINE 2MG [Concomitant]
     Active Substance: TOLTERODINE
  9. TYLENOL [Concomitant]
     Active Substance: ACETAMINOPHEN
  10. ATORVASTATIN 40MG [Concomitant]
     Active Substance: ATORVASTATIN
  11. MELATONIN 5MG [Concomitant]
     Active Substance: MELATONIN
  12. TEMOZOLOMIDE. [Suspect]
     Active Substance: TEMOZOLOMIDE
     Indication: BRAIN NEOPLASM MALIGNANT
     Dosage: ?          OTHER FREQUENCY:QD FOR 5/28 DAYS;?
     Route: 048
     Dates: start: 20200613, end: 20210903
  13. ZETIA [Concomitant]
     Active Substance: EZETIMIBE
  14. MULTIVITAMIN [Concomitant]
     Active Substance: VITAMINS
  15. NITROGLYCERIN 0.4MG [Concomitant]
  16. ASPIRIN 81MG [Concomitant]
     Active Substance: ASPIRIN
  17. PANTOPRAZOLE 40MG [Concomitant]
     Active Substance: PANTOPRAZOLE SODIUM
  18. DEXAMETHASONE 2MG [Concomitant]
  19. DOCUSATE 50MG [Concomitant]
  20. ACYCLOVIR. [Concomitant]
     Active Substance: ACYCLOVIR

REACTIONS (1)
  - Disease progression [None]

NARRATIVE: CASE EVENT DATE: 20210903
